FAERS Safety Report 4545841-5 (Version None)
Quarter: 2005Q1

REPORT INFORMATION
  Report Type: 
  Country: None (occurrence: None)
  Receive Date: 20050103
  Receipt Date: 20041222
  Transmission Date: 20050727
  Serious: Yes (Death, Hospitalization)
  Sender: FDA-Public Use
  Company Number: 2004239258US

PATIENT
  Age: 75 Year
  Sex: Female
  Weight: 60.782 kg

DRUGS (4)
  1. CAMPTOSAR [Suspect]
     Indication: ILL-DEFINED DISORDER
     Dosage: 125 MG/M2 (D1, 8, 15 EVERY 4 WEEKS), INTRAVENOUS
     Route: 042
     Dates: start: 20040817, end: 20040907
  2. FOLINIC ACID [Concomitant]
  3. FLUOROURACIL [Concomitant]
  4. OXALIPLATIN [Concomitant]

REACTIONS (1)
  - INTESTINAL PERFORATION [None]
